FAERS Safety Report 19802601 (Version 1)
Quarter: 2021Q3

REPORT INFORMATION
  Report Type: Spontaneous
  Country: GB (occurrence: GB)
  Receive Date: 20210908
  Receipt Date: 20210908
  Transmission Date: 20211014
  Serious: Yes (Other)
  Sender: FDA-Public Use
  Company Number: GB-NOVOPROD-842872

PATIENT
  Sex: Female
  Weight: 49.89 kg

DRUGS (2)
  1. LACTULOSE LIQUID [Concomitant]
     Active Substance: LACTULOSE
     Indication: ILL-DEFINED DISORDER
     Dosage: UNK
  2. VAGIFEM [Suspect]
     Active Substance: ESTRADIOL
     Indication: URINARY INCONTINENCE
     Dosage: EVERY NIGHT FOR 2 EEKS THEN TWICE WEEKLY
     Route: 067
     Dates: start: 20210820, end: 20210827

REACTIONS (2)
  - Product use in unapproved indication [Unknown]
  - Abdominal pain upper [Recovering/Resolving]

NARRATIVE: CASE EVENT DATE: 20210820
